FAERS Safety Report 5046332-8 (Version None)
Quarter: 2006Q3

REPORT INFORMATION
  Report Type: 
  Country: None (occurrence: None)
  Receive Date: 20060710
  Receipt Date: 20060209
  Transmission Date: 20061208
  Serious: Yes (Other)
  Sender: FDA-Public Use
  Company Number: US-MERCK-0602USA02465

PATIENT
  Sex: Male

DRUGS (1)
  1. VYTORIN [Suspect]
     Route: 048
     Dates: start: 20010901, end: 20050901

REACTIONS (8)
  - AORTIC ANEURYSM [None]
  - ASTHENIA [None]
  - BACK PAIN [None]
  - DECREASED ACTIVITY [None]
  - MUSCLE INJURY [None]
  - MYALGIA [None]
  - PAIN [None]
  - TREMOR [None]
